FAERS Safety Report 10078814 (Version 1)
Quarter: 2014Q2

REPORT INFORMATION
  Report Type: Report from Study
  Country: ES (occurrence: ES)
  Receive Date: 20140415
  Receipt Date: 20140415
  Transmission Date: 20141212
  Serious: Yes (Death)
  Sender: FDA-Public Use
  Company Number: ES-SA-2014SA047988

PATIENT
  Sex: 0

DRUGS (3)
  1. CARBOPLATIN [Suspect]
     Indication: NON-SMALL CELL LUNG CANCER
     Dosage: DOSE : AUC : 5 : ON DAY 1, EVERY 21 DAYS, UPTO 6 CYCLES.
     Route: 065
  2. DOCETAXEL [Suspect]
     Indication: NON-SMALL CELL LUNG CANCER
     Dosage: ON DAY 1 EVERY 21 DAYS
     Route: 065
  3. BEVACIZUMAB [Suspect]
     Indication: NON-SMALL CELL LUNG CANCER
     Dosage: ON DAY1 , EVERY 21 DAYS
     Route: 065

REACTIONS (1)
  - Death [Fatal]
